FAERS Safety Report 4519155-3 (Version None)
Quarter: 2004Q4

REPORT INFORMATION
  Report Type: 
  Country: None (occurrence: None)
  Receive Date: 20041206
  Receipt Date: 20041018
  Transmission Date: 20050328
  Serious: Yes (Hospitalization)
  Sender: FDA-Public Use
  Company Number: SE-ROCHE-383534

PATIENT
  Age: 36 Year
  Sex: Male

DRUGS (13)
  1. DACLIZUMAB [Suspect]
     Route: 042
     Dates: start: 20040612, end: 20040612
  2. DACLIZUMAB [Suspect]
     Route: 042
     Dates: start: 20040605, end: 20040605
  3. MYCOPHENOLATE MOFETIL [Suspect]
     Route: 042
     Dates: start: 20040606, end: 20040610
  4. MYCOPHENOLATE MOFETIL [Suspect]
     Route: 042
     Dates: start: 20040605, end: 20040605
  5. MYCOPHENOLATE MOFETIL [Suspect]
     Route: 048
     Dates: start: 20040611
  6. TACROLIMUS [Suspect]
     Route: 048
     Dates: start: 20040610
  7. METHYLPREDNISOLONE [Suspect]
     Route: 065
  8. OMEPRAZOLE [Concomitant]
     Indication: PROPHYLAXIS
     Dates: start: 20040607
  9. URSODEOXYCHOLIC ACID [Concomitant]
     Dates: start: 20040609
  10. ACETYLSALICYLIC ACID [Concomitant]
     Indication: THROMBOSIS PROPHYLAXIS
     Dates: start: 20040614
  11. CALCIUM CARBONATE [Concomitant]
     Indication: OSTEOPOROSIS PROPHYLAXIS
     Dates: start: 20040619
  12. VALGANCICLOVIR [Concomitant]
     Indication: ANTIVIRAL PROPHYLAXIS
     Dates: start: 20040623
  13. TRIMETHOPRIM-SULFAMETHOXAZOLE [Concomitant]
     Indication: ANTIBACTERIAL PROPHYLAXIS
     Dates: start: 20040618

REACTIONS (8)
  - ASTHENIA [None]
  - CONSTIPATION [None]
  - CYTOMEGALOVIRUS HEPATITIS [None]
  - CYTOMEGALOVIRUS INFECTION [None]
  - LIVER TRANSPLANT REJECTION [None]
  - PAIN [None]
  - PARAESTHESIA [None]
  - WOUND INFECTION [None]
